FAERS Safety Report 8368414-5 (Version None)
Quarter: 2012Q2

REPORT INFORMATION
  Report Type: 
  Country: None (occurrence: None)
  Receive Date: 20120517
  Receipt Date: 20120507
  Transmission Date: 20120825
  Serious: Yes (Hospitalization, Other)
  Sender: FDA-Public Use
  Company Number: CA-ELI_LILLY_AND_COMPANY-CA201205002739

PATIENT
  Age: 77 Year
  Sex: Female

DRUGS (12)
  1. REPAGLINIDE [Concomitant]
     Dosage: 1 MG, BID
  2. OMEGA III [Concomitant]
     Dosage: 1000 MG, QD
  3. CRESTOR [Concomitant]
     Dosage: 20 MG, QD
  4. PANTOPRAZOLE [Concomitant]
     Dosage: 40 MG, QD
  5. METFORMIN HCL [Concomitant]
     Dosage: 500 MG, TID
  6. JANUVIA [Concomitant]
     Dosage: 10 MG, QD
  7. AMLODIPINE BESYLATE [Concomitant]
     Dosage: 5 MG, QD
  8. FORTEO [Suspect]
     Indication: OSTEOPOROSIS
     Dosage: 20 UG, QD
     Route: 058
     Dates: start: 20120201, end: 20120503
  9. TYLENOL                                 /SCH/ [Concomitant]
     Dosage: 650 MG, PRN
  10. TRAMADOL HYDROCHLORIDE [Concomitant]
     Dosage: 300 MG, QD
  11. MICARDIS [Concomitant]
     Dosage: 80 MG, QD
  12. VITAMIN D [Concomitant]

REACTIONS (3)
  - BONE PAIN [None]
  - MULTIPLE MYELOMA [None]
  - HIP FRACTURE [None]
